FAERS Safety Report 10086122 (Version 1)
Quarter: 2014Q2

REPORT INFORMATION
  Report Type: Spontaneous
  Country: None (occurrence: None)
  Receive Date: 20140416
  Receipt Date: 20140416
  Transmission Date: 20141212
  Serious: No
  Sender: FDA-Public Use
  Company Number: B0985111A

PATIENT
  Sex: 0

DRUGS (2)
  1. ACYCLOVIR [Suspect]
     Indication: OPHTHALMIC HERPES SIMPLEX
     Dosage: EACH EYE/BOTH EYES
  2. STEROID [Concomitant]

REACTIONS (3)
  - Drug resistance [None]
  - Ophthalmic herpes simplex [None]
  - No therapeutic response [None]
